FAERS Safety Report 7207404-2 (Version None)
Quarter: 2011Q1

REPORT INFORMATION
  Report Type: 
  Country: None (occurrence: None)
  Receive Date: 20110103
  Receipt Date: 20101210
  Transmission Date: 20110831
  Serious: Yes (Hospitalization)
  Sender: FDA-Public Use
  Company Number: GB-PFIZER INC-2010148849

PATIENT
  Age: 26 Year
  Sex: Male

DRUGS (2)
  1. PARACETAMOL [Suspect]
  2. IBUPROFEN [Suspect]

REACTIONS (1)
  - MULTIPLE DRUG OVERDOSE [None]
